FAERS Safety Report 4968971-2 (Version None)
Quarter: 2006Q2

REPORT INFORMATION
  Report Type: 
  Country: None (occurrence: None)
  Receive Date: 20060405
  Receipt Date: 20060327
  Transmission Date: 20061013
  Serious: Yes (Other)
  Sender: FDA-Public Use
  Company Number: 2005-0008922

PATIENT
  Age: 26 Year
  Sex: Male
  Weight: 93.2 kg

DRUGS (5)
  1. EMTRICITABINE (EMTRICITABINE) [Suspect]
     Indication: HIV INFECTION
     Dosage: 200 MG, 1 IN 1 D, ORAL
     Route: 048
     Dates: start: 20050425, end: 20050911
  2. TENOFOVIR DISOPROXIL FUMARATE (TENOFOVIR DISOPROXIL FUMARATE) [Suspect]
     Indication: HIV INFECTION
     Dosage: 300 MG, 1 IN 1 D, ORAL
     Route: 048
     Dates: start: 20050425, end: 20050911
  3. TENOFOVIR DISOPROXIL FUMARATE (TENOFOVIR DISOPROXIL FUMARATE) [Suspect]
     Indication: HIV INFECTION
     Dosage: 300 MG, 1 IN 1 D, ORAL
     Route: 048
     Dates: start: 20051221
  4. EFAVIRENZ [Suspect]
     Indication: HIV INFECTION
     Dosage: 600 UNKNOWN, 1 IN 1 D, ORAL
     Route: 048
     Dates: start: 20030617, end: 20050120
  5. EFAVIRENZ [Suspect]
     Indication: HIV INFECTION
     Dosage: 600 UNKNOWN, 1 IN 1 D, ORAL
     Route: 048
     Dates: start: 20050617, end: 20050911

REACTIONS (3)
  - HEPATIC NECROSIS [None]
  - HEPATITIS [None]
  - HYPERLIPIDAEMIA [None]
